FAERS Safety Report 17685699 (Version 1)
Quarter: 2020Q2

REPORT INFORMATION
  Report Type: Spontaneous
  Country: US (occurrence: US)
  Receive Date: 20200417
  Receipt Date: 20200417
  Transmission Date: 20200714
  Serious: No
  Sender: FDA-Public Use
  Company Number: None

PATIENT
  Age: 74 Year
  Sex: Male
  Weight: 63.96 kg

DRUGS (1)
  1. APIXABAN (APIXABAN 5MG TAB) [Suspect]
     Active Substance: APIXABAN
     Dates: start: 20190328, end: 20190417

REACTIONS (3)
  - Abdominal pain [None]
  - Gastrointestinal haemorrhage [None]
  - Melaena [None]

NARRATIVE: CASE EVENT DATE: 20190419
